FAERS Safety Report 7502120-1 (Version None)
Quarter: 2011Q2

REPORT INFORMATION
  Report Type: 
  Country: None (occurrence: None)
  Receive Date: 20110525
  Receipt Date: 20110520
  Transmission Date: 20111010
  Serious: Yes (Death, Hospitalization, Other)
  Sender: FDA-Public Use
  Company Number: JP-BAYER-200912911BYL

PATIENT
  Age: 63 Year
  Sex: Male
  Weight: 50.2 kg

DRUGS (18)
  1. NEXAVAR [Suspect]
     Indication: HEPATIC NEOPLASM MALIGNANT
     Route: 048
     Dates: start: 20090702, end: 20090729
  2. FRANDOL [Concomitant]
     Dosage: SINCE BEFORE ADMINISTRATION
     Route: 062
  3. NEXAVAR [Suspect]
     Dosage: 400 MG, BID
     Route: 048
     Dates: start: 20090826, end: 20100512
  4. ALOSITOL [Concomitant]
     Dosage: SINCE BEFORE ADMINISTRATION
     Route: 048
  5. LANSOPRAZOLE [Concomitant]
     Dosage: SINCE BEFORE ADMINISTRATION
     Route: 048
  6. TANNALBIN [Concomitant]
     Dosage: SINCE BEFORE ADMINISTRATION
     Route: 048
  7. NEXAVAR [Suspect]
     Dosage: 400 MG, QD
     Route: 048
     Dates: start: 20090805, end: 20090825
  8. BIOFERMIN [Concomitant]
     Dosage: SINCE BEFORE ADMINISTRATION
     Route: 048
  9. JUVELA [Concomitant]
     Dosage: SINCE BEFORE ADMINIDTRATION
     Route: 048
  10. PERSANTIN [Concomitant]
     Dosage: SINCE BEFORE ADMINIDTRATION
     Route: 048
  11. LOPERAMIDE HCL [Concomitant]
     Dosage: SINCE BEFORE ADMINISTRATION
     Route: 048
  12. PREDNISOLONE [Concomitant]
     Dosage: SINCE BEFORE ADMINISTRATION
     Route: 048
  13. GLAKAY [Concomitant]
     Dosage: SINCE BEFORE ADMINISTRATION
     Route: 048
  14. LASIX [Concomitant]
     Dosage: SINCE BEFORE ADMINISTRATION
     Route: 048
  15. LIVACT [Concomitant]
     Dosage: SINCE BEFORE ADMINISTRATION
     Route: 048
  16. FALKAMIN [Concomitant]
     Dosage: DAILY DOSE 12.45 MG
     Route: 048
  17. ALDACTONE [Concomitant]
     Dosage: SINCE BEFORE ADMINISTRATION
     Route: 048
  18. URSO 250 [Concomitant]
     Dosage: SINCE BEFORE ADMINISTRATION
     Route: 048

REACTIONS (5)
  - HEPATIC FUNCTION ABNORMAL [None]
  - HEPATIC NEOPLASM MALIGNANT [None]
  - PLATELET COUNT DECREASED [None]
  - PALMAR-PLANTAR ERYTHRODYSAESTHESIA SYNDROME [None]
  - MALAISE [None]
